FAERS Safety Report 6235982-9 (Version None)
Quarter: 2009Q2

REPORT INFORMATION
  Report Type: 
  Country: None (occurrence: None)
  Receive Date: 20090617
  Receipt Date: 20090617
  Transmission Date: 20091009
  Serious: Yes (Other)
  Sender: FDA-Public Use
  Company Number: None

PATIENT
  Age: 67 Year
  Weight: 88.4514 kg

DRUGS (1)
  1. SOLAGE [Suspect]
     Indication: LENTIGO
     Dosage: APPLICATION 2 DAILY TOP
     Route: 061
     Dates: start: 20090502, end: 20090616

REACTIONS (1)
  - NO THERAPEUTIC RESPONSE [None]
